FAERS Safety Report 17205630 (Version 3)
Quarter: 2020Q1

REPORT INFORMATION
  Report Type: Spontaneous
  Country: NO (occurrence: NO)
  Receive Date: 20191227
  Receipt Date: 20200203
  Transmission Date: 20200409
  Serious: Yes (Hospitalization, Disabling)
  Sender: FDA-Public Use
  Company Number: NO-ABBVIE-19P-122-3210390-00

PATIENT
  Age: 26 Year
  Sex: Female
  Weight: 115 kg

DRUGS (1)
  1. PROCREN [Suspect]
     Active Substance: LEUPROLIDE ACETATE
     Indication: ENDOMETRIOSIS
     Dosage: 3 MILLIGRAM, MONTHLY
     Route: 058
     Dates: start: 201602, end: 201608

REACTIONS (13)
  - Personality change [Unknown]
  - Insomnia [Not Recovered/Not Resolved]
  - Teeth brittle [Unknown]
  - Suicidal ideation [Recovered/Resolved]
  - Mood swings [Recovered/Resolved]
  - Poor dental condition [Not Recovered/Not Resolved]
  - Emotional distress [Recovered/Resolved with Sequelae]
  - Vulvovaginal dryness [Not Recovered/Not Resolved]
  - Pain [Recovered/Resolved with Sequelae]
  - Vulvovaginal pruritus [Unknown]
  - Arthralgia [Recovered/Resolved]
  - Hot flush [Unknown]
  - Loss of consciousness [Recovered/Resolved]

NARRATIVE: CASE EVENT DATE: 201602
